FAERS Safety Report 26195099 (Version 1)
Quarter: 2025Q4

REPORT INFORMATION
  Report Type: Spontaneous
  Country: EU (occurrence: EU)
  Receive Date: 20251224
  Receipt Date: 20251224
  Transmission Date: 20260118
  Serious: Yes (Hospitalization, Other)
  Sender: Kenvue
  Company Number: EU-PFIZER INC-PV202500093972

PATIENT
  Age: 49 Year
  Weight: 62 kg

DRUGS (3)
  1. LOPERAMIDE HYDROCHLORIDE [Suspect]
     Active Substance: LOPERAMIDE HYDROCHLORIDE
     Indication: Colon cancer
     Dosage: 8 MG, DAILY
     Route: 061
  2. LEVOLEUCOVORIN CALCIUM [Suspect]
     Active Substance: LEVOLEUCOVORIN CALCIUM
     Indication: Colon cancer
     Dosage: 350 MG, EVERY 2 WEEKS (CYCLICAL)
  3. FLUOROURACIL [Concomitant]
     Active Substance: FLUOROURACIL
     Indication: Colon cancer
     Dosage: 2535 MG, EVERY 2 WEEKS (CYCLICAL)

REACTIONS (1)
  - Intestinal obstruction [Recovered/Resolved]
